FAERS Safety Report 21800794 (Version 1)
Quarter: 2022Q4

REPORT INFORMATION
  Report Type: Spontaneous
  Country: FR (occurrence: FR)
  Receive Date: 20221230
  Receipt Date: 20221230
  Transmission Date: 20230113
  Serious: Yes (Other)
  Sender: FDA-Public Use
  Company Number: FR-002147023-NVSC2022FR300994

PATIENT
  Age: 88 Year
  Sex: Female

DRUGS (3)
  1. PREDNISONE [Suspect]
     Active Substance: PREDNISONE
     Indication: Analgesic therapy
     Dosage: 1 MG/KG, QD, 9 COURSES
     Route: 065
     Dates: start: 202007, end: 202104
  2. AMOXICILLIN [Concomitant]
     Active Substance: AMOXICILLIN
     Indication: Erysipelas
     Dosage: 1 G, TID
     Route: 048
  3. SILVER SULFADIAZINE [Concomitant]
     Active Substance: SILVER SULFADIAZINE
     Indication: Erysipelas
     Dosage: UNK
     Route: 065

REACTIONS (2)
  - Mycobacterium chelonae infection [Unknown]
  - Product use in unapproved indication [Unknown]
